FAERS Safety Report 10622313 (Version 2)
Quarter: 2016Q3

REPORT INFORMATION
  Report Type: Report from Study
  Country: TR (occurrence: TR)
  Receive Date: 20141203
  Receipt Date: 20160812
  Transmission Date: 20161109
  Serious: Yes (Other)
  Sender: FDA-Public Use
  Company Number: TR-BAYER-2014-175433

PATIENT
  Age: 39 Year
  Sex: Female

DRUGS (2)
  1. BETAFERON [Suspect]
     Active Substance: INTERFERON BETA-1B
     Indication: MULTIPLE SCLEROSIS
     Dosage: UNK
     Route: 058
     Dates: end: 2016
  2. BETAFERON [Suspect]
     Active Substance: INTERFERON BETA-1B
     Indication: MULTIPLE SCLEROSIS
     Dosage: 250 ?G, QOD
     Route: 058
     Dates: start: 2004

REACTIONS (6)
  - Injection site necrosis [None]
  - Drug ineffective [None]
  - Injection site necrosis [None]
  - Tremor [None]
  - Multiple sclerosis [None]
  - Injection site injury [None]

NARRATIVE: CASE EVENT DATE: 20141015
